FAERS Safety Report 8763359 (Version 2)
Quarter: 2012Q4

REPORT INFORMATION
  Report Type: Spontaneous
  Country: JP (occurrence: None)
  Receive Date: 20120828
  Receipt Date: 20121009
  Transmission Date: 20130627
  Serious: Yes (Hospitalization, Other)
  Sender: FDA-Public Use
  Company Number: UTC-022170

PATIENT
  Age: 48 Year
  Sex: Female
  Weight: 56 kg

DRUGS (17)
  1. REMODULIN [Suspect]
     Indication: PULMONARY ARTERIAL HYPERTENSION
     Dosage: 40.32 ug/kg (0.028 ug/kg, 1 in 1 min),Intravenous drip
     Dates: start: 20120718
  2. REMODULIN [Suspect]
     Indication: PULMONARY ARTERIAL HYPERTENSION
     Dosage: titrated up by 0.6 ng/kg/min per day,Intravenous drip
     Dates: start: 20120721
  3. REMODULIN [Suspect]
     Indication: PULMONARY ARTERIAL HYPERTENSION
     Dosage: titrated up by 0.9 ng/kg/min per day,Intravenous drip
     Dates: start: 20120730
  4. REMODULIN [Suspect]
     Indication: PULMONARY ARTERIAL HYPERTENSION
     Dosage: titrated up by 2 ng/kg/min per day (0.01 ug/kg,1 in 1 min),Intravenous drip
     Dates: start: 20120801
  5. REMODULIN [Suspect]
     Indication: PULMONARY ARTERIAL HYPERTENSION
     Dosage: 36 ug/kg (0.025 ug/kg,1 in 1 min), Intravenous drip
     Dates: start: 20120808
  6. REMODULIN [Suspect]
     Indication: PULMONARY ARTERIAL HYPERTENSION
     Dosage: 40.32 ug/kg (0.028 ug/kg,1 in 1 min), Intravenous drip
     Dates: start: 20120810
  7. REMODULIN [Suspect]
     Indication: PULMONARY ARTERIAL HYPERTENSION
     Dosage: 36 ug/kg (0.025 ug/kg,1 in 1 min), Intravenous drip
     Dates: start: 20120815
  8. REMODULIN [Suspect]
     Indication: PULMONARY ARTERIAL HYPERTENSION
     Dosage: 14.4 ug/kg (0.01 ug/kg,1 in 1 min), Intravenous drip
     Dates: start: 20120820, end: 20120821
  9. REMODULIN [Suspect]
     Indication: PULMONARY ARTERIAL HYPERTENSION
     Dosage: 12.96 ug/kg (0.009 ug/kg,1 in 1 min), Intravenous drip
     Dates: start: 20120821, end: 201208
  10. REMODULIN [Suspect]
     Indication: PULMONARY ARTERIAL HYPERTENSION
     Dosage: decreased by 1 ng/kg/min thereafter (1 in 1 min), Intravenous drip
     Dates: start: 201208, end: 20120902
  11. ADCIRCA (TADALAFIL) [Concomitant]
  12. ALDACTAONE (SPIRONOLACTONE) [Concomitant]
  13. WARFARIN [Concomitant]
  14. HYALEIN (HYALURONATE SODIUM) [Concomitant]
  15. PREDNISOLONE (PREDNISOLONE) [Concomitant]
  16. TRACLEER (BOSENTAN) [Concomitant]
  17. LASIX (FUROSEMIDE) [Suspect]

REACTIONS (9)
  - Thrombocytopenia [None]
  - Neutropenia [None]
  - Headache [None]
  - Purpura [None]
  - Dizziness [None]
  - Hypoaesthesia [None]
  - Diarrhoea [None]
  - Malaise [None]
  - Blood pressure decreased [None]
